FAERS Safety Report 7217808-X (Version None)
Quarter: 2011Q1

REPORT INFORMATION
  Report Type: 
  Country: None (occurrence: None)
  Receive Date: 20110110
  Receipt Date: 20110107
  Transmission Date: 20110831
  Serious: Yes (Death)
  Sender: FDA-Public Use
  Company Number: PHHY2010US88603

PATIENT
  Sex: Female
  Weight: 50 kg

DRUGS (7)
  1. PROCHLORPERAZINE [Concomitant]
  2. LISINOPRIL [Concomitant]
  3. SIMVASTATIN [Concomitant]
  4. LANTUS [Concomitant]
  5. NOVOLIN R [Concomitant]
  6. ASPIRIN [Concomitant]
  7. EXJADE [Suspect]
     Indication: MYELOID LEUKAEMIA
     Dosage: 1000 MG DAILY
     Route: 048
     Dates: start: 20101011

REACTIONS (2)
  - ACUTE MYELOID LEUKAEMIA [None]
  - NEOPLASM MALIGNANT [None]
